FAERS Safety Report 5750901-7 (Version None)
Quarter: 2008Q2

REPORT INFORMATION
  Report Type: 
  Country: None (occurrence: None)
  Receive Date: 20080528
  Receipt Date: 20080520
  Transmission Date: 20081010
  Serious: Yes (Hospitalization)
  Sender: FDA-Public Use
  Company Number: FR-ROCHE-563243

PATIENT
  Sex: Male
  Weight: 86.5 kg

DRUGS (9)
  1. VALGANCICLOVIR HCL [Suspect]
     Indication: DRUG USE FOR UNKNOWN INDICATION
     Route: 065
     Dates: start: 20080426
  2. ENFUVIRTIDE [Suspect]
     Route: 065
     Dates: start: 20080430
  3. KALETRA [Suspect]
     Route: 065
     Dates: start: 20080430
  4. KALETRA [Suspect]
     Route: 065
     Dates: start: 20080430
  5. TRUVADA [Suspect]
     Route: 065
     Dates: start: 20080430
  6. TRUVADA [Suspect]
     Route: 065
     Dates: start: 20080430
  7. SULFAMETHOXAZOLE AND TRIMETHOPRIM [Suspect]
     Indication: DRUG USE FOR UNKNOWN INDICATION
     Dosage: DRUG NAME: BACTRIM FORTE
     Route: 065
     Dates: start: 20080325
  8. SULFAMETHOXAZOLE AND TRIMETHOPRIM [Suspect]
     Dosage: DRUG NAME: BACTRIM FORTE
     Route: 065
     Dates: start: 20080325
  9. AZADOSE [Concomitant]
     Dates: start: 20080414

REACTIONS (4)
  - DIARRHOEA [None]
  - GENERAL PHYSICAL HEALTH DETERIORATION [None]
  - NEUTROPENIA [None]
  - PYREXIA [None]
